FAERS Safety Report 8239910-6 (Version None)
Quarter: 2012Q1

REPORT INFORMATION
  Report Type: 
  Country: None (occurrence: None)
  Receive Date: 20120328
  Receipt Date: 20120320
  Transmission Date: 20120608
  Serious: Yes (Other)
  Sender: FDA-Public Use
  Company Number: US-JNJFOC-20120309835

PATIENT
  Sex: Female

DRUGS (14)
  1. PRAVASTATIN [Concomitant]
     Route: 065
  2. JANUMET [Concomitant]
     Route: 065
  3. AMLODIPINE [Concomitant]
     Route: 065
  4. SYNTHROID [Concomitant]
     Route: 065
  5. ZANTAC [Concomitant]
     Route: 065
  6. HYDROCHLOROTHIAZIDE [Concomitant]
     Route: 065
  7. COUMADIN [Concomitant]
     Route: 065
  8. RECLAST [Concomitant]
     Dosage: 1 IN THE PAST YEAR
     Route: 065
  9. HUMALOG [Concomitant]
     Route: 065
  10. REMICADE [Suspect]
     Indication: RHEUMATOID ARTHRITIS
     Dosage: ON INFLIXIMAB FOR 2 YEARS
     Route: 042
  11. CALCIUM AND VIT D [Concomitant]
     Route: 065
  12. LISINOPRIL [Concomitant]
     Route: 065
  13. CELEBREX [Concomitant]
     Route: 065
  14. PREDNISONE TAB [Concomitant]
     Route: 065

REACTIONS (1)
  - CALCIPHYLAXIS [None]
